FAERS Safety Report 4421342-X (Version None)
Quarter: 2004Q3

REPORT INFORMATION
  Report Type: 
  Country: None (occurrence: None)
  Receive Date: 20040804
  Receipt Date: 20040722
  Transmission Date: 20050211
  Serious: Yes (Life-Threatening, Hospitalization, Disabling, Other)
  Sender: FDA-Public Use
  Company Number: 2004050561

PATIENT
  Sex: Male

DRUGS (2)
  1. FELDENE [Suspect]
     Indication: ARTHRALGIA
     Dates: start: 20010601, end: 20010710
  2. ACETYLSALICYLIC ACID SRT [Concomitant]

REACTIONS (54)
  - ALOPECIA [None]
  - ANTERIOR CHAMBER DISORDER [None]
  - ASTHENIA [None]
  - BLINDNESS [None]
  - CATARACT [None]
  - CHOKING [None]
  - COMA [None]
  - CONJUNCTIVAL SCAR [None]
  - CORNEAL NEOVASCULARISATION [None]
  - DACRYOSTENOSIS ACQUIRED [None]
  - DRY MOUTH [None]
  - DYSPHAGIA [None]
  - ERYTHEMA [None]
  - EYE IRRITATION [None]
  - EYELID OEDEMA [None]
  - FEAR [None]
  - GENITAL ULCERATION [None]
  - HIRSUTISM [None]
  - HYPERSENSITIVITY [None]
  - IDIOSYNCRATIC DRUG REACTION [None]
  - IMPAIRED WORK ABILITY [None]
  - INCISION SITE COMPLICATION [None]
  - INFLUENZA LIKE ILLNESS [None]
  - INGROWN HAIR [None]
  - KERATOCONJUNCTIVITIS SICCA [None]
  - LIVEDO RETICULARIS [None]
  - LOWER RESPIRATORY TRACT INFECTION [None]
  - MADAROSIS [None]
  - MENTAL DISORDER [None]
  - MOVEMENT DISORDER [None]
  - NAIL DISORDER [None]
  - NAUSEA [None]
  - NIPPLE SWELLING [None]
  - ONYCHOMADESIS [None]
  - ORAL MUCOSAL BLISTERING [None]
  - PENILE INFECTION [None]
  - PHIMOSIS [None]
  - PHOTOSENSITIVITY REACTION [None]
  - POST PROCEDURAL COMPLICATION [None]
  - PRURITUS GENERALISED [None]
  - PYREXIA [None]
  - SCAR [None]
  - SKIN ATROPHY [None]
  - SKIN DEPIGMENTATION [None]
  - SKIN DISCOMFORT [None]
  - SKIN DISORDER [None]
  - SKIN ULCER [None]
  - STEVENS-JOHNSON SYNDROME [None]
  - TEMPERATURE INTOLERANCE [None]
  - TOXIC EPIDERMAL NECROLYSIS [None]
  - TRACHEOSTOMY MALFUNCTION [None]
  - TREATMENT NONCOMPLIANCE [None]
  - VISION BLURRED [None]
  - VISUAL ACUITY REDUCED [None]
